FAERS Safety Report 9694061 (Version 2)
Quarter: 2014Q1

REPORT INFORMATION
  Report Type: Spontaneous
  Country: US (occurrence: US)
  Receive Date: 20131118
  Receipt Date: 20140128
  Transmission Date: 20141002
  Serious: Yes (Hospitalization)
  Sender: FDA-Public Use
  Company Number: US-009507513-1311USA005493

PATIENT
  Age: 8 Year
  Sex: Male

DRUGS (2)
  1. SINGULAIR [Suspect]
     Indication: ASTHMA
     Dosage: 5M, A PM PO
     Route: 048
  2. ADVAIR [Suspect]
     Indication: ASTHMA
     Dosage: 2 PUFFS AM/PM PO
     Route: 055

REACTIONS (5)
  - Choking [Unknown]
  - Fear [Unknown]
  - Complex partial seizures [Unknown]
  - Morbid thoughts [Unknown]
  - Sleep terror [Unknown]
